FAERS Safety Report 16803098 (Version 2)
Quarter: 2019Q4

REPORT INFORMATION
  Report Type: Report from Study
  Country: US (occurrence: US)
  Receive Date: 20190913
  Receipt Date: 20191213
  Transmission Date: 20200122
  Serious: No
  Sender: FDA-Public Use
  Company Number: PHEH2019US037140

PATIENT
  Age: 72 Year
  Sex: Female
  Weight: 71.66 kg

DRUGS (4)
  1. COSENTYX [Suspect]
     Active Substance: SECUKINUMAB
     Indication: PSORIASIS
     Dosage: 300 MG, QW FOR 5 WEEKS AND THEREAFTER EVERY 4 WEEKS
     Route: 058
     Dates: start: 20190424
  2. COSENTYX [Suspect]
     Active Substance: SECUKINUMAB
     Dosage: 300 MG, QMO
     Route: 058
  3. COSENTYX [Suspect]
     Active Substance: SECUKINUMAB
     Indication: PSORIASIS
     Dosage: 300 MG, QMO
     Route: 058
  4. COSENTYX [Suspect]
     Active Substance: SECUKINUMAB
     Dosage: 300 MG, QMO
     Route: 058

REACTIONS (10)
  - Ocular hyperaemia [Not Recovered/Not Resolved]
  - Wound haemorrhage [Unknown]
  - Fall [Unknown]
  - Macule [Unknown]
  - Sinus disorder [Unknown]
  - Skin haemorrhage [Unknown]
  - Neck pain [Unknown]
  - Pain in extremity [Unknown]
  - Sinus headache [Unknown]
  - Localised infection [Recovered/Resolved]

NARRATIVE: CASE EVENT DATE: 201908
